FAERS Safety Report 6764845-5 (Version None)
Quarter: 2010Q2

REPORT INFORMATION
  Report Type: 
  Country: None (occurrence: None)
  Receive Date: 20100609
  Receipt Date: 20100506
  Transmission Date: 20101027
  Serious: No
  Sender: FDA-Public Use
  Company Number: 2010011904

PATIENT
  Age: 6 Year
  Sex: Male
  Weight: 29.0302 kg

DRUGS (2)
  1. CHILDREN'S ZYRTEC ALLERGY [Suspect]
     Indication: HYPERSENSITIVITY
     Dosage: 1 TSP NIGHTLY,ORAL
     Route: 048
     Dates: end: 20100505
  2. EPINEEPHRINE [Concomitant]

REACTIONS (6)
  - ABNORMAL BEHAVIOUR [None]
  - BURNING SENSATION [None]
  - DECREASED APPETITE [None]
  - OROPHARYNGEAL PAIN [None]
  - PRODUCT QUALITY ISSUE [None]
  - TOOTH DISORDER [None]
